FAERS Safety Report 4738263-5 (Version None)
Quarter: 2005Q3

REPORT INFORMATION
  Report Type: 
  Country: None (occurrence: None)
  Receive Date: 20050803
  Receipt Date: 20050722
  Transmission Date: 20060218
  Serious: Yes (Hospitalization)
  Sender: FDA-Public Use
  Company Number: 11894

PATIENT
  Age: 68 Year
  Sex: 0

DRUGS (6)
  1. CARBOPLATIN [Suspect]
     Indication: SMALL CELL LUNG CANCER STAGE UNSPECIFIED
     Dosage: 800 MG PER_CYCLE, IV
     Route: 042
     Dates: start: 20050331, end: 20050331
  2. ETOPOSIDE [Suspect]
     Indication: SMALL CELL LUNG CANCER STAGE UNSPECIFIED
     Dosage: 180 M G PER_CYCLE IV
     Route: 042
     Dates: start: 20050531, end: 20050602
  3. MORPHINE [Concomitant]
  4. LANSOPRAZOLE [Concomitant]
  5. DEXAMETHASONE [Concomitant]
  6. DOMPERIDONE [Concomitant]

REACTIONS (8)
  - ANAEMIA [None]
  - BODY TEMPERATURE INCREASED [None]
  - C-REACTIVE PROTEIN INCREASED [None]
  - CHILLS [None]
  - FATIGUE [None]
  - HAEMOGLOBIN DECREASED [None]
  - PLATELET COUNT DECREASED [None]
  - WHITE BLOOD CELL COUNT DECREASED [None]
